FAERS Safety Report 7555055-2 (Version None)
Quarter: 2011Q2

REPORT INFORMATION
  Report Type: 
  Country: None (occurrence: None)
  Receive Date: 20110617
  Receipt Date: 20110606
  Transmission Date: 20111010
  Serious: Yes (Hospitalization)
  Sender: FDA-Public Use
  Company Number: PHHY2011ES50736

PATIENT
  Age: 65 Year
  Sex: Female

DRUGS (7)
  1. TEGRETOL [Interacting]
     Indication: EPILEPSY
     Dosage: 200 MG, BID
     Route: 048
     Dates: start: 20090101, end: 20110426
  2. HYDROCHLOROTHIAZIDE [Suspect]
     Route: 048
     Dates: start: 20090101, end: 20110426
  3. LOSARTAN POTASSIUM [Interacting]
     Indication: HYPERTENSION
     Route: 048
     Dates: start: 20090101
  4. FLUOXETINE HCL [Interacting]
     Indication: DEPRESSION
     Route: 048
     Dates: start: 20100101
  5. ESOMEPRAZOLE MAGNESIUM [Concomitant]
     Indication: GASTROINTESTINAL ULCER
     Route: 048
  6. SERETIDE [Concomitant]
     Indication: ASTHMA
  7. KEPRA [Concomitant]
     Indication: EPILEPSY
     Route: 048

REACTIONS (5)
  - INAPPROPRIATE ANTIDIURETIC HORMONE SECRETION [None]
  - CONFUSIONAL STATE [None]
  - BLOOD POTASSIUM DECREASED [None]
  - BLOOD SODIUM DECREASED [None]
  - DRUG INTERACTION [None]
